FAERS Safety Report 21459377 (Version 1)
Quarter: 2022Q4

REPORT INFORMATION
  Report Type: Spontaneous
  Country: FR (occurrence: FR)
  Receive Date: 20221014
  Receipt Date: 20221014
  Transmission Date: 20230113
  Serious: Yes (Death)
  Sender: FDA-Public Use
  Company Number: None

PATIENT
  Age: 3 Month
  Sex: Male
  Weight: 3.3 kg

DRUGS (1)
  1. REMIFENTANIL [Suspect]
     Active Substance: REMIFENTANIL
     Indication: Endotracheal intubation
     Dosage: 0.1 MILLIGRAM/KILOGRAM, 1 TOTAL
     Route: 042
     Dates: start: 20220803, end: 20220803

REACTIONS (2)
  - Cardio-respiratory arrest [Fatal]
  - Product prescribing error [Not Recovered/Not Resolved]

NARRATIVE: CASE EVENT DATE: 20220803
